FAERS Safety Report 17440733 (Version 3)
Quarter: 2020Q1

REPORT INFORMATION
  Report Type: Spontaneous
  Country: US (occurrence: US)
  Receive Date: 20200220
  Receipt Date: 20200310
  Transmission Date: 20200409
  Serious: Yes (Other)
  Sender: FDA-Public Use
  Company Number: US-PFIZER INC-2020063561

PATIENT
  Age: 47 Year
  Sex: Male

DRUGS (4)
  1. NOREPINEPHRINE BITARTRATE. [Suspect]
     Active Substance: NOREPINEPHRINE BITARTRATE
     Dosage: TITRATED DOWN OVER 1 H
  2. VASOPRESSIN. [Suspect]
     Active Substance: VASOPRESSIN
     Indication: HYPOTENSION
     Dosage: UP-TITRATED TO A MAXIMUM RATE OF 0.04 U/MIN
  3. EPINEPHRINE. [Suspect]
     Active Substance: EPINEPHRINE
     Indication: HYPOTENSION
     Dosage: MAXIMUM RATE OF 0.5 UG/ KG/MIN
  4. NOREPINEPHRINE BITARTRATE. [Suspect]
     Active Substance: NOREPINEPHRINE BITARTRATE
     Indication: HYPOTENSION
     Dosage: EVENTUALLY UP-TITRATED TO 1.5 UG/KG/MIN

REACTIONS (2)
  - Electrocardiogram ST segment elevation [Recovered/Resolved]
  - Arteriospasm coronary [Recovered/Resolved]
